FAERS Safety Report 24448604 (Version 1)
Quarter: 2024Q4

REPORT INFORMATION
  Report Type: Spontaneous
  Country: US (occurrence: US)
  Receive Date: 20241017
  Receipt Date: 20241017
  Transmission Date: 20250115
  Serious: No
  Sender: BIOGEN
  Company Number: US-BIOGEN-2024BI01286090

PATIENT
  Age: 23 Year
  Sex: Female

DRUGS (2)
  1. ZURZUVAE [Suspect]
     Active Substance: ZURANOLONE
     Indication: Perinatal depression
     Dosage: 2 (25 MG) CAPSULES DAILY (TOTAL 50 MG/DAY) EVERY EVENING
     Route: 050
     Dates: start: 20241001
  2. ZURZUVAE [Suspect]
     Active Substance: ZURANOLONE
     Dosage: 1 CAPSULE (25 MG) PER DAY
     Route: 050
     Dates: start: 202410

REACTIONS (1)
  - Sedation [Recovered/Resolved]

NARRATIVE: CASE EVENT DATE: 20241002
